FAERS Safety Report 7214374-X (Version None)
Quarter: 2011Q1

REPORT INFORMATION
  Report Type: 
  Country: None (occurrence: None)
  Receive Date: 20110107
  Receipt Date: 20101228
  Transmission Date: 20110831
  Serious: Yes (Other)
  Sender: FDA-Public Use
  Company Number: PHHY2010US88887

PATIENT
  Sex: Male

DRUGS (1)
  1. EXJADE [Suspect]
     Dosage: 725 MG, QD
     Route: 048
     Dates: start: 20100901, end: 20101101

REACTIONS (1)
  - BONE MARROW TRANSPLANT [None]
